FAERS Safety Report 23518244 (Version 1)
Quarter: 2024Q1

REPORT INFORMATION
  Report Type: Spontaneous
  Country: US (occurrence: None)
  Receive Date: 20240213
  Receipt Date: 20240213
  Transmission Date: 20240409
  Serious: Yes (Disabling)
  Sender: FDA-Public Use
  Company Number: None

PATIENT
  Age: 45 Year
  Sex: Female
  Weight: 90 kg

DRUGS (11)
  1. TOPIRAMATE [Suspect]
     Active Substance: TOPIRAMATE
     Indication: Migraine prophylaxis
     Dosage: OTHER QUANTITY : 1 TABLET(S);?FREQUENCY : AT BEDTIME;?
     Route: 048
     Dates: start: 20220819, end: 20231107
  2. TOPIRAMATE [Suspect]
     Active Substance: TOPIRAMATE
     Indication: Seizure
  3. PROPRANOLOL [Concomitant]
     Active Substance: PROPRANOLOL HYDROCHLORIDE
  4. Combination Birth Control Estradiol Progestin [Concomitant]
  5. TRAMADOL [Concomitant]
     Active Substance: TRAMADOL\TRAMADOL HYDROCHLORIDE
  6. HistaminX Probiotic [Concomitant]
  7. Digest Basic Digestive Enzyme [Concomitant]
  8. VITAMIN C [Concomitant]
     Active Substance: ASCORBIC ACID
  9. MAGNESIUM [Concomitant]
     Active Substance: MAGNESIUM
  10. ASPIRIN [Concomitant]
     Active Substance: ASPIRIN
  11. VITAMIN D [Concomitant]
     Active Substance: VITAMIN D NOS

REACTIONS (3)
  - Vision blurred [None]
  - Suicidal ideation [None]
  - Cognitive disorder [None]

NARRATIVE: CASE EVENT DATE: 20231101
